FAERS Safety Report 5146246-9 (Version None)
Quarter: 2006Q4

REPORT INFORMATION
  Report Type: 
  Country: None (occurrence: None)
  Receive Date: 20061108
  Receipt Date: 20061031
  Transmission Date: 20070319
  Serious: Yes (Other)
  Sender: FDA-Public Use
  Company Number: 2006UW21072

PATIENT
  Age: 66 Year
  Sex: Male

DRUGS (3)
  1. TENORMIN [Suspect]
     Route: 048
  2. CARDIZEM CD [Concomitant]
     Route: 048
  3. HYZAAR [Concomitant]
     Route: 048

REACTIONS (1)
  - COUGH [None]
